FAERS Safety Report 22314701 (Version 1)
Quarter: 2023Q2

REPORT INFORMATION
  Report Type: Spontaneous
  Country: US (occurrence: None)
  Receive Date: 20230511
  Receipt Date: 20230511
  Transmission Date: 20230721
  Serious: No
  Sender: FDA-Public Use
  Company Number: None

PATIENT
  Age: 99 Year
  Sex: Female

DRUGS (1)
  1. EVENITY [Suspect]
     Active Substance: ROMOSOZUMAB-AQQG
     Indication: Osteoporosis
     Dosage: INJECT 210MG (2 SYRINGES) SUBCUTANEOUSLY ONCE A MONTH AS DIRECTED
     Route: 058
     Dates: start: 202208

REACTIONS (1)
  - Pneumonia [None]
